FAERS Safety Report 9296433 (Version 4)
Quarter: 2014Q3

REPORT INFORMATION
  Report Type: Spontaneous
  Country: US (occurrence: US)
  Receive Date: 20130517
  Receipt Date: 20140711
  Transmission Date: 20150326
  Serious: Yes (Hospitalization, Disabling)
  Sender: FDA-Public Use
  Company Number: US-009507513-1305USA010639

PATIENT
  Sex: Male

DRUGS (2)
  1. GLUCOTROL [Concomitant]
     Active Substance: GLIPIZIDE
     Dosage: UNK
     Dates: start: 1990
  2. PROPECIA [Suspect]
     Active Substance: FINASTERIDE
     Indication: ALOPECIA
     Dosage: 1 MG, UNK
     Route: 048
     Dates: start: 2002, end: 2005

REACTIONS (13)
  - Infertility [Not Recovered/Not Resolved]
  - Concussion [Unknown]
  - Knee operation [Unknown]
  - Intervertebral disc protrusion [Unknown]
  - Joint injury [Unknown]
  - Penis disorder [Unknown]
  - Erectile dysfunction [Not Recovered/Not Resolved]
  - Back injury [Unknown]
  - Road traffic accident [Unknown]
  - Semen volume decreased [Unknown]
  - Libido decreased [Unknown]
  - Road traffic accident [Unknown]
  - Sexual dysfunction [Not Recovered/Not Resolved]

NARRATIVE: CASE EVENT DATE: 2002
